FAERS Safety Report 5624799-1 (Version None)
Quarter: 2008Q1

REPORT INFORMATION
  Report Type: 
  Country: None (occurrence: None)
  Receive Date: 20080213
  Receipt Date: 20080201
  Transmission Date: 20080703
  Serious: Yes (Other)
  Sender: FDA-Public Use
  Company Number: CH-ROCHE-545340

PATIENT
  Age: 36 Year
  Sex: Female

DRUGS (2)
  1. ROACCUTAN [Suspect]
     Indication: DRUG USE FOR UNKNOWN INDICATION
     Route: 048
     Dates: start: 20070917, end: 20071217
  2. ROACCUTAN [Suspect]
     Route: 048
     Dates: start: 20071217, end: 20080105

REACTIONS (2)
  - NO ADVERSE EVENT [None]
  - PREGNANCY [None]
